FAERS Safety Report 25329086 (Version 10)
Quarter: 2025Q2

REPORT INFORMATION
  Report Type: Spontaneous
  Country: US (occurrence: US)
  Receive Date: 20250519
  Receipt Date: 20250602
  Transmission Date: 20250717
  Serious: Yes (Death, Hospitalization, Other)
  Sender: PACIRA
  Company Number: US-ORG100016242-2025000173

PATIENT
  Age: 79 Year
  Sex: Male

DRUGS (1)
  1. ZILRETTA [Suspect]
     Active Substance: TRIAMCINOLONE ACETONIDE
     Indication: Product used for unknown indication
     Route: 050
     Dates: start: 20250429, end: 20250429

REACTIONS (4)
  - Death [Fatal]
  - Thrombosis [Unknown]
  - Septic arthritis staphylococcal [Unknown]
  - Pain in extremity [Unknown]

NARRATIVE: CASE EVENT DATE: 20250505
